FAERS Safety Report 24695172 (Version 1)
Quarter: 2024Q4

REPORT INFORMATION
  Report Type: Spontaneous
  Country: US (occurrence: None)
  Receive Date: 20241204
  Receipt Date: 20241204
  Transmission Date: 20250115
  Serious: Yes (Other)
  Sender: Public
  Company Number: None

PATIENT
  Sex: Female

DRUGS (9)
  1. ACTEMRA [Suspect]
     Active Substance: TOCILIZUMAB
     Indication: Rheumatoid arthritis
     Dosage: OTHER QUANTITY : 1 PEN;?FREQUENCY : WEEKLY;?FREQ: INJECT 1 PEN UNDER THE SKIN (SUBCUTANEOUS INJECTIO
     Route: 058
     Dates: start: 20240907
  2. ALPRAZOLAM [Concomitant]
     Active Substance: ALPRAZOLAM
  3. CELECOXIB [Concomitant]
     Active Substance: CELECOXIB
  4. DULOXETINE [Concomitant]
     Active Substance: DULOXETINE
  5. ACETAMINOPHEN\HYDROCODONE [Concomitant]
     Active Substance: ACETAMINOPHEN\HYDROCODONE
  6. LOSARTAN POTASSIUM [Concomitant]
     Active Substance: LOSARTAN POTASSIUM
  7. METHOTREXATE [Concomitant]
     Active Substance: METHOTREXATE
  8. PREDNISONE [Concomitant]
     Active Substance: PREDNISONE
  9. TIZANIDINE HYDROCHLORIDE [Concomitant]
     Active Substance: TIZANIDINE HYDROCHLORIDE

REACTIONS (4)
  - Fatigue [None]
  - Headache [None]
  - Arthralgia [None]
  - Therapy interrupted [None]
